FAERS Safety Report 22363163 (Version 1)
Quarter: 2023Q2

REPORT INFORMATION
  Report Type: Spontaneous
  Country: US (occurrence: US)
  Receive Date: 20230525
  Receipt Date: 20230525
  Transmission Date: 20230721
  Serious: Yes (Hospitalization)
  Sender: FDA-Public Use
  Company Number: US-SLATE RUN PHARMACEUTICALS-23US001601

PATIENT

DRUGS (2)
  1. GUANFACINE HYDROCHLORIDE [Suspect]
     Active Substance: GUANFACINE HYDROCHLORIDE
     Indication: Product used for unknown indication
     Dosage: 90-120 DOSAGE FORM, SINGLE
     Route: 048
  2. ARIPIPRAZOLE [Suspect]
     Active Substance: ARIPIPRAZOLE
     Indication: Intentional overdose
     Dosage: 5 DOSAGE FORM, SINGLE
     Route: 048

REACTIONS (10)
  - Posterior reversible encephalopathy syndrome [Recovered/Resolved]
  - Intentional overdose [Recovered/Resolved]
  - Generalised tonic-clonic seizure [Recovered/Resolved]
  - Apnoea [Recovered/Resolved]
  - Hypertension [Recovered/Resolved]
  - Bradycardia [Recovered/Resolved]
  - Hypotension [Recovered/Resolved]
  - Orthostatic hypotension [Recovered/Resolved]
  - Somnolence [Recovered/Resolved]
  - Presyncope [Recovered/Resolved]
